FAERS Safety Report 22073531 (Version 1)
Quarter: 2023Q1

REPORT INFORMATION
  Report Type: Report from Study
  Country: US (occurrence: None)
  Receive Date: 20230308
  Receipt Date: 20230308
  Transmission Date: 20230417
  Serious: Yes (Other)
  Sender: FDA-Public Use
  Company Number: US-ROCHE-2912764

PATIENT
  Age: 32 Year
  Sex: Female
  Weight: 111.75 kg

DRUGS (2)
  1. ATEZOLIZUMAB [Suspect]
     Active Substance: ATEZOLIZUMAB
     Indication: Alveolar soft part sarcoma
     Dosage: LAST ADMINISTERED DATE: 05/MAY/2020, 23/NOV/2021, 21/DEC/2021, 24/FEB/2022, 17/MAR/2022, 21/APR/2022
     Route: 041
     Dates: start: 20200324
  2. BEVACIZUMAB [Suspect]
     Active Substance: BEVACIZUMAB
     Indication: Alveolar soft part sarcoma metastatic
     Route: 042

REACTIONS (2)
  - Hyperthyroidism [Recovered/Resolved]
  - Hyperthyroidism [Unknown]

NARRATIVE: CASE EVENT DATE: 20200505
